FAERS Safety Report 13899599 (Version 1)
Quarter: 2017Q3

REPORT INFORMATION
  Report Type: Spontaneous
  Country: US (occurrence: US)
  Receive Date: 20170823
  Receipt Date: 20170823
  Transmission Date: 20171127
  Serious: No
  Sender: FDA-Public Use
  Company Number: US-JAZZ-2017-US-008802

PATIENT
  Sex: Female

DRUGS (40)
  1. XYREM [Suspect]
     Active Substance: SODIUM OXYBATE
     Indication: CATAPLEXY
     Dosage: DOSE ADJUSTMENT
     Route: 048
     Dates: start: 201304, end: 2015
  2. VERAPAMIL [Concomitant]
     Active Substance: VERAPAMIL HYDROCHLORIDE
  3. PEPPERMINT OIL [Concomitant]
     Active Substance: PEPPERMINT OIL
  4. CHONDROITIN SULFATE [Concomitant]
     Active Substance: SODIUM CHONDROITIN SULFATE
  5. MELOXICAM. [Concomitant]
     Active Substance: MELOXICAM
  6. ASTELIN                            /00085801/ [Concomitant]
     Active Substance: AZELASTINE HYDROCHLORIDE
  7. LINZESS [Concomitant]
     Active Substance: LINACLOTIDE
  8. NOXAFIL [Concomitant]
     Active Substance: POSACONAZOLE
  9. MIRCETTE-28 [Concomitant]
  10. AYGESTIN [Concomitant]
     Active Substance: NORETHINDRONE ACETATE
  11. VITAMIN D3 [Concomitant]
     Active Substance: CHOLECALCIFEROL
  12. XYREM [Suspect]
     Active Substance: SODIUM OXYBATE
     Dosage: 3G, BID
     Route: 048
     Dates: start: 201705
  13. CLINDAMYCIN HCL [Concomitant]
     Active Substance: CLINDAMYCIN HYDROCHLORIDE
  14. MAALOX ANTACID [Concomitant]
     Active Substance: ALUMINUM HYDROXIDE\DIMETHICONE\MAGNESIUM HYDROXIDE
  15. HYDROCORTISONE. [Concomitant]
     Active Substance: HYDROCORTISONE
  16. METAXALONE. [Concomitant]
     Active Substance: METAXALONE
  17. VYTORIN [Concomitant]
     Active Substance: EZETIMIBE\SIMVASTATIN
  18. PROVENTIL HFA                      /00139501/ [Concomitant]
  19. ULTRAM [Concomitant]
     Active Substance: TRAMADOL HYDROCHLORIDE
  20. NEXIUM [Concomitant]
     Active Substance: ESOMEPRAZOLE MAGNESIUM
  21. XYREM [Suspect]
     Active Substance: SODIUM OXYBATE
     Indication: NARCOLEPSY
     Dosage: 1.5G, BID
     Route: 048
     Dates: start: 201303, end: 201304
  22. MUCINEX D [Concomitant]
     Active Substance: GUAIFENESIN\PSEUDOEPHEDRINE HYDROCHLORIDE
  23. SINGULAIR [Concomitant]
     Active Substance: MONTELUKAST SODIUM
  24. LASIX [Concomitant]
     Active Substance: FUROSEMIDE
  25. SOLU-CORTEF [Concomitant]
     Active Substance: HYDROCORTISONE SODIUM SUCCINATE
  26. NEURONTIN [Concomitant]
     Active Substance: GABAPENTIN
  27. LIDOCAINE HCL [Concomitant]
     Active Substance: LIDOCAINE HYDROCHLORIDE
  28. NUVARING [Concomitant]
     Active Substance: ETHINYL ESTRADIOL\ETONOGESTREL
  29. XYREM [Suspect]
     Active Substance: SODIUM OXYBATE
     Dosage: 4.5G, QD, FIRST DOSE
     Route: 048
     Dates: start: 201506, end: 2015
  30. ASPIRIN 81 [Concomitant]
     Active Substance: ASPIRIN
  31. COENZYME Q10 [Concomitant]
     Active Substance: UBIDECARENONE
  32. ZOVIA [Concomitant]
     Active Substance: ETHINYL ESTRADIOL\ETHYNODIOL DIACETATE
  33. XYREM [Suspect]
     Active Substance: SODIUM OXYBATE
     Dosage: 1.5G, QD, SECOND DOSE
     Route: 048
     Dates: start: 201507, end: 2015
  34. FLUCONAZOLE. [Concomitant]
     Active Substance: FLUCONAZOLE
  35. HEATHER                            /00044901/ [Concomitant]
  36. CEFTIN [Concomitant]
     Active Substance: CEFUROXIME AXETIL
  37. MAXALT-MLT [Concomitant]
     Active Substance: RIZATRIPTAN BENZOATE
  38. DULERA [Concomitant]
     Active Substance: FORMOTEROL FUMARATE DIHYDRATE\MOMETASONE FUROATE
  39. CLARINEX                           /01202601/ [Concomitant]
     Active Substance: LORATADINE\PSEUDOEPHEDRINE SULFATE
  40. NASONEX [Concomitant]
     Active Substance: MOMETASONE FUROATE

REACTIONS (1)
  - Therapeutic response decreased [Unknown]
